FAERS Safety Report 7669787-9 (Version None)
Quarter: 2011Q3

REPORT INFORMATION
  Report Type: 
  Country: None (occurrence: None)
  Receive Date: 20110803
  Receipt Date: 20110803
  Transmission Date: 20111222
  Serious: Yes (Other)
  Sender: FDA-Public Use
  Company Number: 2009S1005898

PATIENT
  Age: 63 Year
  Sex: Female
  Weight: 85.2762 kg

DRUGS (10)
  1. DIOVAN [Concomitant]
  2. COMBIVENT [Concomitant]
  3. CRANBERRY [Concomitant]
  4. CLARITIN [Concomitant]
  5. MULTIVITAMIN [Concomitant]
  6. PHOPHOSODA FLAVOR NOT SPECIFIED [Suspect]
     Indication: COLONOSCOPY
     Dosage: PO
     Route: 048
     Dates: start: 20061001, end: 20061001
  7. FELODIPINE [Concomitant]
  8. ASPIRIN [Concomitant]
  9. FERROUS SULFATE TAB [Concomitant]
  10. NASONEX [Concomitant]

REACTIONS (11)
  - NEPHROSCLEROSIS [None]
  - DIVERTICULUM [None]
  - HAEMATURIA [None]
  - PROTEINURIA [None]
  - HAEMORRHOIDS [None]
  - CALCULUS URETERIC [None]
  - INJURY [None]
  - RENAL ARTERIOSCLEROSIS [None]
  - RENAL FAILURE CHRONIC [None]
  - RENAL TUBULAR DISORDER [None]
  - RENAL CYST [None]
